FAERS Safety Report 5767998-0 (Version None)
Quarter: 2008Q2

REPORT INFORMATION
  Report Type: 
  Country: None (occurrence: None)
  Receive Date: 20080601
  Receipt Date: 20080310
  Transmission Date: 20081010
  Serious: No
  Sender: FDA-Public Use
  Company Number: US200803002303

PATIENT
  Age: 68 Year
  Sex: Female
  Weight: 93 kg

DRUGS (6)
  1. BYETTA [Suspect]
     Indication: TYPE 2 DIABETES MELLITUS
     Dosage: 5 UG, 2/D, SUBCUTANEOUS
     Route: 058
     Dates: start: 20080101, end: 20080225
  2. ASPIRIN [Concomitant]
  3. NEXIUM [Concomitant]
  4. LISINOPRIL HYDROCHLOROTHIAZIDE (HYDROCHLOROTHIAZIDE, LISINOPRIL) [Concomitant]
  5. LOPRESSOR [Concomitant]
  6. PRAVACHOL [Concomitant]

REACTIONS (5)
  - DYSURIA [None]
  - NAUSEA [None]
  - POLLAKIURIA [None]
  - URINARY TRACT INFECTION [None]
  - VOMITING [None]
